FAERS Safety Report 24649248 (Version 3)
Quarter: 2025Q1

REPORT INFORMATION
  Report Type: Spontaneous
  Country: US (occurrence: US)
  Receive Date: 20241121
  Receipt Date: 20250310
  Transmission Date: 20250409
  Serious: No
  Sender: SANOFI AVENTIS
  Company Number: US-SA-2024SA337948

PATIENT
  Age: 18 Year
  Sex: Male
  Weight: 78.47 kg

DRUGS (13)
  1. LUMIZYME [Suspect]
     Active Substance: ALGLUCOSIDASE ALFA
     Indication: Glycogen storage disease type II
     Dosage: 1600 MG, QOW
     Route: 042
     Dates: start: 20210727
  2. ACETAMINOPHEN [Concomitant]
     Active Substance: ACETAMINOPHEN
  3. STERILE WATER [Concomitant]
     Active Substance: WATER
  4. SODIUM CHLORIDE [Concomitant]
     Active Substance: SODIUM CHLORIDE
  5. TADALAFIL [Concomitant]
     Active Substance: TADALAFIL
  6. LISINOPRIL [Concomitant]
     Active Substance: LISINOPRIL
  7. IRON [Concomitant]
     Active Substance: IRON
  8. ASPIRIN [Concomitant]
     Active Substance: ASPIRIN
  9. DIPHENHYDRAMINE HYDROCHLORIDE [Concomitant]
     Active Substance: DIPHENHYDRAMINE HYDROCHLORIDE
  10. SODIUM CHLORIDE [Concomitant]
     Active Substance: SODIUM CHLORIDE
  11. EPINEPHRINE [Concomitant]
     Active Substance: EPINEPHRINE
  12. LIDOCAINE [Concomitant]
     Active Substance: LIDOCAINE
  13. VITAMIN D NOS [Concomitant]
     Active Substance: CHOLECALCIFEROL\ERGOCALCIFEROL

REACTIONS (7)
  - Conjunctivitis [Unknown]
  - Ocular hyperaemia [Not Recovered/Not Resolved]
  - Eye discharge [Unknown]
  - Nasopharyngitis [Recovered/Resolved]
  - Weight decreased [Unknown]
  - Fall [Unknown]
  - Joint injury [Unknown]

NARRATIVE: CASE EVENT DATE: 20250201
